FAERS Safety Report 7903565-8 (Version None)
Quarter: 2011Q4

REPORT INFORMATION
  Report Type: 
  Country: None (occurrence: None)
  Receive Date: 20111109
  Receipt Date: 20111109
  Transmission Date: 20120403
  Serious: Yes (Life-Threatening)
  Sender: FDA-Public Use
  Company Number: None

PATIENT
  Sex: Female
  Weight: 99.79 kg

DRUGS (1)
  1. QUETIAPINE [Suspect]
     Indication: BIPOLAR DISORDER
     Dosage: 300 MG
     Route: 048

REACTIONS (9)
  - SPEECH DISORDER [None]
  - FEELING ABNORMAL [None]
  - MUSCLE TWITCHING [None]
  - MENTAL STATUS CHANGES [None]
  - NERVOUSNESS [None]
  - VOMITING [None]
  - TREMOR [None]
  - AGITATION [None]
  - PYREXIA [None]
